FAERS Safety Report 11029467 (Version 1)
Quarter: 2015Q2

REPORT INFORMATION
  Report Type: Spontaneous
  Country: IT (occurrence: IT)
  Receive Date: 20150415
  Receipt Date: 20150415
  Transmission Date: 20150821
  Serious: Yes (Hospitalization)
  Sender: FDA-Public Use
  Company Number: IT-AUROBINDO-AUR-APL-2015-03228

PATIENT
  Age: 53 Year
  Sex: Female

DRUGS (2)
  1. TERBINAFINE TABLETS 250 MG [Suspect]
     Active Substance: TERBINAFINE
     Indication: ONYCHOMYCOSIS
     Dosage: 250 MG, DAILY
     Route: 048
     Dates: start: 20150228, end: 20150307
  2. NIMESULIDE 100MG [Suspect]
     Active Substance: NIMESULIDE
     Indication: HEADACHE
     Dosage: 100 MG, TOTAL
     Route: 048
     Dates: start: 20150308, end: 20150308

REACTIONS (6)
  - Eosinophil count increased [Unknown]
  - Rash pruritic [None]
  - Pruritus [Recovered/Resolved]
  - Rash [None]
  - Rash generalised [Recovering/Resolving]
  - Rash morbilliform [Recovering/Resolving]

NARRATIVE: CASE EVENT DATE: 20150308
